FAERS Safety Report 10510504 (Version 2)
Quarter: 2014Q4

REPORT INFORMATION
  Report Type: Report from Study
  Country: FR (occurrence: FR)
  Receive Date: 20141010
  Receipt Date: 20141209
  Transmission Date: 20150528
  Serious: Yes (Hospitalization)
  Sender: FDA-Public Use
  Company Number: FR-ROCHE-1470141

PATIENT
  Age: 16 Year
  Sex: Male
  Weight: 59.5 kg

DRUGS (23)
  1. RITUXIMAB [Suspect]
     Active Substance: RITUXIMAB
     Indication: BURKITT^S LYMPHOMA
     Dosage: EVERYDAY
     Route: 042
     Dates: start: 20140315, end: 20140315
  2. METHOTREXATE [Suspect]
     Active Substance: METHOTREXATE
     Route: 042
     Dates: start: 20140226
  3. VINCRISTINE [Suspect]
     Active Substance: VINCRISTINE
     Route: 042
     Dates: start: 20140226
  4. CYTARABINE. [Suspect]
     Active Substance: CYTARABINE
     Dosage: EVERYDAY
     Route: 042
     Dates: start: 20140320, end: 20140320
  5. CYTARABINE. [Suspect]
     Active Substance: CYTARABINE
     Route: 042
     Dates: start: 20140226
  6. METHOTREXATE [Suspect]
     Active Substance: METHOTREXATE
     Dosage: EVERYDAY
     Route: 042
     Dates: start: 20140320, end: 20140320
  7. DOXORUBICINE [Suspect]
     Active Substance: DOXORUBICIN
     Route: 042
     Dates: start: 20140226
  8. RITUXIMAB [Suspect]
     Active Substance: RITUXIMAB
     Indication: LEUKAEMIA
     Dosage: EVERYDAY
     Route: 042
     Dates: start: 20140317, end: 20140317
  9. CYCLOPHOSPHAMIDE. [Suspect]
     Active Substance: CYCLOPHOSPHAMIDE
     Route: 042
     Dates: start: 20140226
  10. ZOVIRAX [Concomitant]
     Active Substance: ACYCLOVIR
     Indication: HERPES ZOSTER
     Route: 042
     Dates: start: 20140324, end: 20140403
  11. METHOTREXATE [Suspect]
     Active Substance: METHOTREXATE
     Dosage: EVERYDAY
     Route: 042
     Dates: start: 20140318, end: 20140318
  12. HYDROCORTISONE. [Suspect]
     Active Substance: HYDROCORTISONE
     Indication: B-CELL LYMPHOMA
     Dosage: EVERYDAY
     Route: 037
     Dates: start: 20140318, end: 20140318
  13. HYDROCORTISONE. [Suspect]
     Active Substance: HYDROCORTISONE
     Route: 037
     Dates: start: 20140226
  14. DOXORUBICINE [Suspect]
     Active Substance: DOXORUBICIN
     Indication: B-CELL LYMPHOMA
     Dosage: EVERYDAY
     Route: 042
     Dates: start: 20140318, end: 20140318
  15. CYTARABINE. [Suspect]
     Active Substance: CYTARABINE
     Indication: B-CELL LYMPHOMA
     Dosage: EVERYDAY
     Route: 042
     Dates: start: 20140318, end: 20140318
  16. RITUXIMAB [Suspect]
     Active Substance: RITUXIMAB
     Route: 042
     Dates: start: 20140226
  17. VINCRISTINE [Suspect]
     Active Substance: VINCRISTINE
     Indication: B-CELL LYMPHOMA
     Dosage: EVERYDAY
     Route: 042
     Dates: start: 20140317, end: 20140317
  18. HYDROCORTISONE. [Suspect]
     Active Substance: HYDROCORTISONE
     Dosage: EVERYDAY
     Route: 037
     Dates: start: 20140320, end: 20140320
  19. METHOTREXATE [Suspect]
     Active Substance: METHOTREXATE
     Indication: B-CELL LYMPHOMA
     Dosage: EVERYDAY
     Route: 042
     Dates: start: 20140318, end: 20140318
  20. RITUXIMAB [Suspect]
     Active Substance: RITUXIMAB
     Route: 042
     Dates: start: 20140617
  21. CYCLOPHOSPHAMIDE. [Suspect]
     Active Substance: CYCLOPHOSPHAMIDE
     Indication: B-CELL LYMPHOMA
     Dosage: EVERYDAY
     Route: 042
     Dates: start: 20140318, end: 20140320
  22. CYTARABINE. [Suspect]
     Active Substance: CYTARABINE
     Dosage: EVERYDAY
     Route: 042
     Dates: start: 20140322, end: 20140322
  23. HYDROCORTISONE. [Suspect]
     Active Substance: HYDROCORTISONE
     Dosage: EVERYDAY
     Route: 037
     Dates: start: 20140322, end: 20140322

REACTIONS (3)
  - Herpes zoster [Recovered/Resolved]
  - Pneumonia [Recovered/Resolved]
  - Stomatitis [Recovered/Resolved]

NARRATIVE: CASE EVENT DATE: 20140328
